FAERS Safety Report 9283438 (Version 1)
Quarter: 2013Q2

REPORT INFORMATION
  Report Type: Spontaneous
  Country: US (occurrence: US)
  Receive Date: 20130510
  Receipt Date: 20130510
  Transmission Date: 20140414
  Serious: No
  Sender: FDA-Public Use
  Company Number: US-GLAXOSMITHKLINE-A1008384A

PATIENT
  Sex: Female

DRUGS (10)
  1. TYKERB [Suspect]
     Indication: BREAST CANCER
     Dosage: 4TAB PER DAY
     Route: 048
  2. HERCEPTIN [Concomitant]
  3. UNKNOWN MEDICATION [Concomitant]
  4. CIMETIDINE [Concomitant]
  5. LEVOTHYROXINE [Concomitant]
  6. LIOTHYRONINE [Concomitant]
  7. POTASSIUM CHLORIDE [Concomitant]
  8. METHYLPHENIDATE [Concomitant]
  9. CYMBALTA [Concomitant]
  10. LORAZEPAM [Concomitant]

REACTIONS (1)
  - Pruritus [Recovered/Resolved]
